FAERS Safety Report 24660433 (Version 1)
Quarter: 2024Q4

REPORT INFORMATION
  Report Type: Spontaneous
  Country: US (occurrence: None)
  Receive Date: 20241124
  Receipt Date: 20241124
  Transmission Date: 20250115
  Serious: Yes (Other)
  Sender: Public
  Company Number: None

PATIENT
  Age: 53 Year
  Sex: Male
  Weight: 87.75 kg

DRUGS (6)
  1. HERBALS\MITRAGYNINE [Suspect]
     Active Substance: HERBALS\MITRAGYNINE
     Indication: Pain
  2. Seroquell [Concomitant]
  3. METOPROLOL [Concomitant]
     Active Substance: METOPROLOL
  4. LEVOTHYROXINE [Concomitant]
     Active Substance: LEVOTHYROXINE
  5. Cochlear implant [Concomitant]
  6. OPMS [Concomitant]

REACTIONS (3)
  - Withdrawal syndrome [None]
  - Weight decreased [None]
  - Asthenia [None]

NARRATIVE: CASE EVENT DATE: 20241118
